FAERS Safety Report 17504717 (Version 1)
Quarter: 2020Q1

REPORT INFORMATION
  Report Type: Spontaneous
  Country: CA (occurrence: CA)
  Receive Date: 20200305
  Receipt Date: 20200305
  Transmission Date: 20200409
  Serious: Yes (Disabling, Other)
  Sender: FDA-Public Use
  Company Number: CA-GE HEALTHCARE LIFE SCIENCES-2020CSU000931

PATIENT

DRUGS (2)
  1. GADOLINIUM (UNSPECIFIED) [Suspect]
     Active Substance: GADOLINIUM
     Indication: MAGNETIC RESONANCE IMAGING
     Dosage: UNK UNK, SINGLE
     Route: 042
     Dates: start: 20170213, end: 20170213
  2. GADOLINIUM (UNSPECIFIED) [Suspect]
     Active Substance: GADOLINIUM
     Indication: PRODUCT USED FOR UNKNOWN INDICATION

REACTIONS (12)
  - Physical disability [Unknown]
  - Pain [Unknown]
  - Stress [Unknown]
  - Muscle contracture [Unknown]
  - Asthenia [Unknown]
  - Contrast media deposition [Unknown]
  - Tinnitus [Unknown]
  - Muscle disorder [Unknown]
  - Skin disorder [Unknown]
  - Mental disorder [Unknown]
  - Gastrointestinal disorder [Unknown]
  - Emotional distress [Unknown]
